FAERS Safety Report 5577459-X (Version None)
Quarter: 2007Q4

REPORT INFORMATION
  Report Type: 
  Country: None (occurrence: None)
  Receive Date: 20071228
  Receipt Date: 20071218
  Transmission Date: 20080405
  Serious: Yes (Hospitalization, Other)
  Sender: FDA-Public Use
  Company Number: US-PFIZER INC-2007106240

PATIENT

DRUGS (1)
  1. DILANTIN [Suspect]

REACTIONS (3)
  - ANGER [None]
  - DEPRESSION [None]
  - IRRITABILITY [None]
